FAERS Safety Report 5466794-1 (Version None)
Quarter: 2007Q3

REPORT INFORMATION
  Report Type: 
  Country: None (occurrence: None)
  Receive Date: 20070925
  Receipt Date: 20070913
  Transmission Date: 20080115
  Serious: Yes (Hospitalization)
  Sender: FDA-Public Use
  Company Number: US-JNJFOC-20070903389

PATIENT
  Age: 30 Year
  Sex: Male

DRUGS (5)
  1. RISPERIDONE [Suspect]
     Indication: SCHIZOAFFECTIVE DISORDER
  2. LITHIUM [Concomitant]
     Indication: SCHIZOAFFECTIVE DISORDER
  3. ENALAPRIL MALEATE [Concomitant]
  4. NPH INSULIN [Concomitant]
     Indication: DIABETES MELLITUS
  5. REGULAR INSULIN [Concomitant]
     Indication: DIABETES MELLITUS

REACTIONS (1)
  - CHOLESTASIS [None]
